FAERS Safety Report 17080729 (Version 2)
Quarter: 2019Q4

REPORT INFORMATION
  Report Type: Spontaneous
  Country: US (occurrence: US)
  Receive Date: 20191127
  Receipt Date: 20191220
  Transmission Date: 20200122
  Serious: No
  Sender: FDA-Public Use
  Company Number: US-HETERO-HET2019US01605

PATIENT

DRUGS (1)
  1. VALACYCLOVIR [Suspect]
     Active Substance: VALACYCLOVIR HYDROCHLORIDE
     Indication: HERPES ZOSTER
     Dosage: 1 GRAM, TID(10 DAYS) (3 TABLETS A DAY)
     Route: 065

REACTIONS (8)
  - Dizziness [Recovering/Resolving]
  - Persecutory delusion [Recovering/Resolving]
  - Diarrhoea [Recovering/Resolving]
  - Weight decreased [Recovering/Resolving]
  - Dyspnoea [Recovering/Resolving]
  - Hypotension [Recovering/Resolving]
  - Fatigue [Recovering/Resolving]
  - Heart rate increased [Recovering/Resolving]
